FAERS Safety Report 4774935-4 (Version None)
Quarter: 2005Q3

REPORT INFORMATION
  Report Type: 
  Country: None (occurrence: None)
  Receive Date: 20050919
  Receipt Date: 20050909
  Transmission Date: 20060218
  Serious: Yes (Death, Hospitalization, Other)
  Sender: FDA-Public Use
  Company Number: 2005-06-1884

PATIENT
  Age: 61 Year
  Sex: Female
  Weight: 70 kg

DRUGS (11)
  1. PEG-INTRON [Suspect]
     Indication: HEPATITIS C
     Dosage: SEE IMAGE
     Route: 058
     Dates: start: 20050125, end: 20050222
  2. PEG-INTRON [Suspect]
     Indication: HEPATITIS C
     Dosage: SEE IMAGE
     Route: 058
     Dates: start: 20050301, end: 20050419
  3. PEG-INTRON [Suspect]
     Indication: HEPATITIS C
     Dosage: SEE IMAGE
     Route: 058
     Dates: start: 20050125, end: 20050607
  4. PEG-INTRON [Suspect]
     Indication: HEPATITIS C
     Dosage: SEE IMAGE
     Route: 058
     Dates: start: 20050426, end: 20050607
  5. REBETOL [Suspect]
     Indication: HEPATITIS C
     Dosage: 800 MG ORAL
     Route: 048
     Dates: start: 20050125, end: 20050614
  6. FUROSEMIDE [Concomitant]
  7. NIFEDIPINE [Concomitant]
  8. CARDENALIN (DOXAZOSIN MESILATE) TABLETS [Concomitant]
  9. ASCORBIC ACID GRANULES [Concomitant]
  10. JUVELA CAPSULES [Concomitant]
  11. TINELAC [Concomitant]

REACTIONS (7)
  - ACUTE MYOCARDIAL INFARCTION [None]
  - ALANINE AMINOTRANSFERASE INCREASED [None]
  - ARTHRALGIA [None]
  - MALAISE [None]
  - MYALGIA [None]
  - PLATELET COUNT DECREASED [None]
  - PULMONARY CONGESTION [None]
